FAERS Safety Report 4718966-9 (Version None)
Quarter: 2005Q3

REPORT INFORMATION
  Report Type: 
  Country: None (occurrence: None)
  Receive Date: 20050719
  Receipt Date: 20050705
  Transmission Date: 20060218
  Serious: Yes (Disabling)
  Sender: FDA-Public Use
  Company Number: EWC050744879

PATIENT
  Sex: Female

DRUGS (1)
  1. ZYPREXA [Suspect]
     Indication: DELIRIUM
     Dosage: 2.5 MG/1 DAY
     Dates: start: 19990101, end: 20050201

REACTIONS (3)
  - MUSCLE RIGIDITY [None]
  - MUTISM [None]
  - TREMOR [None]
